FAERS Safety Report 8614917-5 (Version None)
Quarter: 2012Q3

REPORT INFORMATION
  Report Type: 
  Country: None (occurrence: None)
  Receive Date: 20120814
  Receipt Date: 20120814
  Transmission Date: 20120928
  Serious: Yes (Other)
  Sender: FDA-Public Use
  Company Number: None

PATIENT
  Sex: Female

DRUGS (1)
  1. PACKED RED CELLS ONE UNIT AMERICAN RED CROSS [Suspect]
     Indication: ANAEMIA
     Dates: start: 20120609, end: 20120609

REACTIONS (6)
  - TACHYCARDIA [None]
  - PYREXIA [None]
  - TRANSFUSION RELATED COMPLICATION [None]
  - OXYGEN SATURATION DECREASED [None]
  - RESPIRATORY RATE INCREASED [None]
  - CHILLS [None]
